FAERS Safety Report 6715360-6 (Version None)
Quarter: 2010Q2

REPORT INFORMATION
  Report Type: 
  Country: None (occurrence: None)
  Receive Date: 20100507
  Receipt Date: 20100428
  Transmission Date: 20101027
  Serious: Yes (Death, Hospitalization, Other)
  Sender: FDA-Public Use
  Company Number: US-BAYER-201013623NA

PATIENT
  Age: 72 Year
  Sex: Male
  Weight: 85 kg

DRUGS (8)
  1. NEXAVAR [Suspect]
     Indication: HEPATIC NEOPLASM MALIGNANT
     Dosage: TOTAL DAILY DOSE: 800 MG  UNIT DOSE: 200 MG
     Route: 048
     Dates: start: 20091228, end: 20100202
  2. CLONAZEPAM [Concomitant]
     Dates: start: 20090101
  3. FOLIC ACID [Concomitant]
     Dates: start: 20090806
  4. LACTULOSE [Concomitant]
     Dosage: 10 MG/15 ML
     Dates: start: 20091222
  5. LOVASTATIN [Concomitant]
     Dates: start: 20090806
  6. METOPROLOL [Concomitant]
     Dates: start: 20090806
  7. OMEPRAZOLE [Concomitant]
     Dates: start: 20090608
  8. OXYCODONE HCL [Concomitant]
     Dates: start: 20091208

REACTIONS (4)
  - CONFUSIONAL STATE [None]
  - FAILURE TO THRIVE [None]
  - HEPATIC NEOPLASM MALIGNANT [None]
  - JAUNDICE [None]
